FAERS Safety Report 9861087 (Version 2)
Quarter: 2014Q1

REPORT INFORMATION
  Report Type: Spontaneous
  Country: US (occurrence: US)
  Receive Date: 20140202
  Receipt Date: 20140202
  Transmission Date: 20141002
  Serious: No
  Sender: FDA-Public Use
  Company Number: US-ALLERGAN-1303439US

PATIENT
  Age: 56 Year
  Sex: Female

DRUGS (6)
  1. BOTOX COSMETIC [Suspect]
     Indication: SKIN WRINKLING
     Dosage: 6 UNITS, SINGLE
     Route: 030
     Dates: start: 20121215, end: 20121215
  2. BOTOX COSMETIC [Suspect]
     Indication: SKIN WRINKLING
     Dosage: 20 UNITS, SINGLE
     Route: 030
     Dates: start: 20121126, end: 20121126
  3. BOTOX COSMETIC [Suspect]
     Indication: SKIN WRINKLING
     Dosage: 20 UNITS, SINGLE
     Route: 030
     Dates: start: 20121116, end: 20121116
  4. THRYOID MEDICATION NOS [Concomitant]
     Indication: THYROID DISORDER
     Dosage: UNK
  5. BLOOD PRESSURE MEDICATION NOS [Concomitant]
     Indication: HYPERTENSION
     Dosage: UNK
  6. CHOLESTEROL MEDICATION NOS [Concomitant]
     Indication: BLOOD CHOLESTEROL INCREASED
     Dosage: UNK

REACTIONS (5)
  - Therapeutic response decreased [Unknown]
  - Drug ineffective [Unknown]
  - Drug ineffective [Unknown]
  - Headache [Recovering/Resolving]
  - Skin tightness [Not Recovered/Not Resolved]
